FAERS Safety Report 23894492 (Version 1)
Quarter: 2024Q2

REPORT INFORMATION
  Report Type: Report from Study
  Country: JP (occurrence: JP)
  Receive Date: 20240524
  Receipt Date: 20240524
  Transmission Date: 20240715
  Serious: Yes (Other)
  Sender: FDA-Public Use
  Company Number: JP-Merz Pharmaceuticals GmbH-24-01789

PATIENT
  Age: 92 Year
  Sex: Female

DRUGS (1)
  1. XEOMIN [Suspect]
     Active Substance: INCOBOTULINUMTOXINA
     Indication: Muscle spasticity
     Route: 030
     Dates: start: 20230921, end: 20230921

REACTIONS (2)
  - Femur fracture [Unknown]
  - Off label use [Unknown]

NARRATIVE: CASE EVENT DATE: 20230921
